FAERS Safety Report 9641824 (Version 1)
Quarter: 2013Q4

REPORT INFORMATION
  Report Type: Spontaneous
  Country: GB (occurrence: None)
  Receive Date: 20131021
  Receipt Date: 20131021
  Transmission Date: 20140711
  Serious: Yes (Other)
  Sender: FDA-Public Use
  Company Number: AUR-APL-2013-08434

PATIENT
  Age: 56 Year
  Sex: Male

DRUGS (5)
  1. NAPROXEN [Suspect]
     Indication: GOUT
     Dosage: 500 MG, 2 IN 1 D
     Route: 048
  2. CO-CODAMOL [Suspect]
     Indication: PRODUCT USED FOR UNKNOWN INDICATION
     Route: 048
  3. OMEPRAZOLE [Concomitant]
  4. RAMIPRIL [Concomitant]
  5. SIMVASTATIN [Concomitant]

REACTIONS (3)
  - Syncope [None]
  - Refusal of treatment by patient [None]
  - Medication error [None]
